FAERS Safety Report 23854733 (Version 4)
Quarter: 2024Q3

REPORT INFORMATION
  Report Type: Spontaneous
  Country: AT (occurrence: AT)
  Receive Date: 20240514
  Receipt Date: 20240705
  Transmission Date: 20241017
  Serious: Yes (Life-Threatening, Other)
  Sender: BRISTOL MYERS SQUIBB
  Company Number: None

PATIENT
  Age: 80 Year
  Sex: Male

DRUGS (5)
  1. OPDUALAG [Suspect]
     Active Substance: NIVOLUMAB\RELATLIMAB-RMBW
     Indication: Product used for unknown indication
     Route: 042
     Dates: start: 20240402, end: 20240402
  2. BISOPROLOL FUMARATE [Concomitant]
     Active Substance: BISOPROLOL FUMARATE
     Indication: Product used for unknown indication
  3. ACEMIN [ACECLOFENAC] [Concomitant]
     Indication: Product used for unknown indication
  4. EDOXABAN TOSYLATE [Concomitant]
     Active Substance: EDOXABAN TOSYLATE
     Indication: Product used for unknown indication
  5. ATORVASTATIN [Concomitant]
     Active Substance: ATORVASTATIN
     Indication: Product used for unknown indication

REACTIONS (4)
  - Atrioventricular block complete [Recovered/Resolved]
  - Myocarditis [Not Recovered/Not Resolved]
  - Myasthenia gravis [Recovering/Resolving]
  - Myocardial necrosis marker increased [Not Recovered/Not Resolved]

NARRATIVE: CASE EVENT DATE: 20240421
